FAERS Safety Report 10205354 (Version 1)
Quarter: 2014Q2

REPORT INFORMATION
  Report Type: Spontaneous
  Country: US (occurrence: US)
  Receive Date: 20140529
  Receipt Date: 20140529
  Transmission Date: 20141212
  Serious: No
  Sender: FDA-Public Use
  Company Number: US-SA-2014SA042281

PATIENT
  Age: 65 Year
  Sex: Female

DRUGS (5)
  1. SOLOSTAR [Suspect]
     Indication: DEVICE THERAPY
  2. SOLOSTAR [Suspect]
     Indication: DEVICE THERAPY
  3. LANTUS SOLOSTAR [Suspect]
     Indication: TYPE 2 DIABETES MELLITUS
     Dosage: DOSE: 62 U AM AND 78 U PM
     Route: 065
  4. LANTUS SOLOSTAR [Suspect]
     Indication: TYPE 2 DIABETES MELLITUS
     Dosage: DOSE: 62 U AM AND 78 U PM
     Route: 065
  5. NOVOLOG [Concomitant]

REACTIONS (2)
  - Injection site pain [Unknown]
  - Drug administration error [Unknown]
